FAERS Safety Report 14179489 (Version 1)
Quarter: 2017Q4

REPORT INFORMATION
  Report Type: Spontaneous
  Country: DE (occurrence: DE)
  Receive Date: 20171110
  Receipt Date: 20171110
  Transmission Date: 20180321
  Serious: Yes (Hospitalization, Other)
  Sender: FDA-Public Use
  Company Number: DE-ABBVIE-17K-062-2154654-00

PATIENT
  Age: 47 Year
  Sex: Male

DRUGS (5)
  1. HUMIRA [Suspect]
     Active Substance: ADALIMUMAB
     Indication: PSORIATIC ARTHROPATHY
     Route: 058
     Dates: start: 201701, end: 201703
  2. DAIVONEX [Concomitant]
     Active Substance: CALCIPOTRIENE
     Indication: PRODUCT USED FOR UNKNOWN INDICATION
     Dosage: 1-2 TIMES PER WEEK
  3. DAIVOBET [Concomitant]
     Active Substance: BETAMETHASONE DIPROPIONATE\CALCIPOTRIENE
     Indication: PRODUCT USED FOR UNKNOWN INDICATION
     Dosage: 1-2 TIMES PER WEEK
  4. HUMIRA [Suspect]
     Active Substance: ADALIMUMAB
     Indication: PSORIASIS
     Route: 058
     Dates: start: 2016, end: 201612
  5. HUMIRA [Suspect]
     Active Substance: ADALIMUMAB
     Route: 058
     Dates: start: 201704, end: 201710

REACTIONS (29)
  - Abdominal lymphadenopathy [Unknown]
  - Intra-abdominal fluid collection [Unknown]
  - Sleep apnoea syndrome [Unknown]
  - Neuralgia [Unknown]
  - Indifference [Unknown]
  - Antinuclear antibody positive [Recovering/Resolving]
  - Colon neoplasm [Unknown]
  - Post herpetic neuralgia [Unknown]
  - Sleep disorder [Unknown]
  - Apathy [Unknown]
  - Mesenteric panniculitis [Recovering/Resolving]
  - Poor quality sleep [Unknown]
  - Splenomegaly [Recovered/Resolved]
  - Serum ferritin increased [Unknown]
  - Abdominal pain lower [Recovering/Resolving]
  - Colitis ulcerative [Unknown]
  - Blood fibrinogen increased [Unknown]
  - Colitis [Unknown]
  - Stenosis [Unknown]
  - C-reactive protein abnormal [Unknown]
  - Anal cancer [Unknown]
  - Hepatic steatosis [Unknown]
  - Psoriasis [Unknown]
  - Arthropathy [Unknown]
  - Large intestinal stenosis [Unknown]
  - Hepatomegaly [Recovered/Resolved]
  - Colitis [Unknown]
  - Photopsia [Recovered/Resolved]
  - Connective tissue disorder [Recovering/Resolving]

NARRATIVE: CASE EVENT DATE: 2016
